FAERS Safety Report 6675570-3 (Version None)
Quarter: 2010Q2

REPORT INFORMATION
  Report Type: 
  Country: None (occurrence: None)
  Receive Date: 20100409
  Receipt Date: 20100329
  Transmission Date: 20101027
  Serious: Yes (Other)
  Sender: FDA-Public Use
  Company Number: PHHY2010NL19002

PATIENT
  Sex: Female

DRUGS (1)
  1. ZOMETA [Suspect]
     Dosage: 4 MG/5 ML IN 30 MINUTES
     Route: 042
     Dates: start: 20100302

REACTIONS (4)
  - FEAR [None]
  - MALAISE [None]
  - METASTASES TO BONE [None]
  - SPINAL CORD DISORDER [None]
